FAERS Safety Report 9970438 (Version 1)
Quarter: 2014Q1

REPORT INFORMATION
  Report Type: Spontaneous
  Country: US (occurrence: None)
  Receive Date: 20140305
  Receipt Date: 20140305
  Transmission Date: 20141002
  Serious: No
  Sender: FDA-Public Use
  Company Number: None

PATIENT
  Age: 28 Year
  Sex: Female
  Weight: 108.86 kg

DRUGS (4)
  1. VYVANSE [Suspect]
     Indication: ATTENTION DEFICIT/HYPERACTIVITY DISORDER
     Route: 048
  2. VYVANSE [Suspect]
     Route: 048
  3. IBUPROFEN [Concomitant]
  4. ASPIRIN [Concomitant]

REACTIONS (3)
  - Bruxism [None]
  - Headache [None]
  - Tooth fracture [None]
